FAERS Safety Report 7941444-0 (Version None)
Quarter: 2011Q4

REPORT INFORMATION
  Report Type: 
  Country: None (occurrence: None)
  Receive Date: 20111128
  Receipt Date: 20111114
  Transmission Date: 20120403
  Serious: Yes (Hospitalization)
  Sender: FDA-Public Use
  Company Number: DK-NOVOPROD-339477

PATIENT

DRUGS (6)
  1. LOSARTANKALIUM/HYDROCHLOORTHIAZIDE [Concomitant]
     Route: 048
  2. METFORMIN HCL [Concomitant]
     Route: 048
  3. AMLODIPINE BESYLATE [Concomitant]
     Route: 048
  4. HJERTEMAGNYL                       /00228701/ [Concomitant]
     Route: 048
  5. SPIRON                             /00006201/ [Concomitant]
     Route: 048
  6. VICTOZA [Suspect]
     Indication: TYPE 2 DIABETES MELLITUS
     Dosage: 1.2 MG, QD
     Route: 058
     Dates: start: 20110915, end: 20110930

REACTIONS (5)
  - CHEST DISCOMFORT [None]
  - PALPITATIONS [None]
  - BLOOD PRESSURE INCREASED [None]
  - HEADACHE [None]
  - DIZZINESS [None]
